FAERS Safety Report 20012229 (Version 3)
Quarter: 2021Q4

REPORT INFORMATION
  Report Type: Spontaneous
  Country: US (occurrence: US)
  Receive Date: 20211029
  Receipt Date: 20211223
  Transmission Date: 20220303
  Serious: Yes (Death, Hospitalization, Other)
  Sender: FDA-Public Use
  Company Number: US-SA-SAC20210809000737

PATIENT
  Sex: Female

DRUGS (5)
  1. DUPIXENT [Suspect]
     Active Substance: DUPILUMAB
     Indication: Asthma
     Dosage: 300 MG, QOW
     Route: 058
     Dates: start: 20200410
  2. DUPIXENT [Suspect]
     Active Substance: DUPILUMAB
     Indication: Bacterial infection
  3. DUPIXENT [Suspect]
     Active Substance: DUPILUMAB
     Indication: Pseudomonas infection
  4. DUPIXENT [Suspect]
     Active Substance: DUPILUMAB
     Indication: Fasciolopsiasis
  5. HIZENTRA [Suspect]
     Active Substance: HUMAN IMMUNOGLOBULIN G
     Route: 042

REACTIONS (4)
  - Death [Fatal]
  - Hospitalisation [Unknown]
  - Injection site pruritus [Unknown]
  - Product use in unapproved indication [Unknown]
